FAERS Safety Report 8242985-1 (Version None)
Quarter: 2012Q1

REPORT INFORMATION
  Report Type: 
  Country: None (occurrence: None)
  Receive Date: 20120329
  Receipt Date: 20120323
  Transmission Date: 20120608
  Serious: Yes (Hospitalization, Other)
  Sender: FDA-Public Use
  Company Number: US-PFIZER INC-2012076158

PATIENT
  Sex: Female
  Weight: 95.238 kg

DRUGS (2)
  1. DILANTIN [Suspect]
     Dosage: 100 MG, 3X/DAY
     Route: 048
  2. DILANTIN [Suspect]
     Indication: SIMPLE PARTIAL SEIZURES
     Dosage: 100 MG, 4X/DAY
     Route: 048
     Dates: start: 19720101

REACTIONS (2)
  - ANTICONVULSANT DRUG LEVEL DECREASED [None]
  - LUNG NEOPLASM [None]
